FAERS Safety Report 7185085-4 (Version None)
Quarter: 2010Q4

REPORT INFORMATION
  Report Type: 
  Country: None (occurrence: None)
  Receive Date: 20101222
  Receipt Date: 20101202
  Transmission Date: 20110411
  Serious: Yes (Other)
  Sender: FDA-Public Use
  Company Number: GB-B.I. PHARMACEUTICALS,INC./RIDGEFIELD-2010-UK-01160UK

PATIENT
  Sex: Male

DRUGS (5)
  1. PERSANTIN [Suspect]
     Dosage: 400 MG
     Route: 048
  2. LEVETIRACETAM [Concomitant]
  3. TRAZODONE HCL [Concomitant]
  4. PARACETAMOL [Concomitant]
  5. LACTULOSE [Concomitant]

REACTIONS (2)
  - EPILEPSY [None]
  - VOMITING [None]
